FAERS Safety Report 6711778-6 (Version None)
Quarter: 2010Q2

REPORT INFORMATION
  Report Type: 
  Country: None (occurrence: None)
  Receive Date: 20100505
  Receipt Date: 20100428
  Transmission Date: 20101027
  Serious: Yes (Hospitalization)
  Sender: FDA-Public Use
  Company Number: B0650140A

PATIENT
  Sex: Male

DRUGS (8)
  1. DEROXAT [Suspect]
     Dosage: 20MG PER DAY
     Route: 048
     Dates: start: 20100302, end: 20100316
  2. TEGRETOL [Suspect]
     Route: 048
     Dates: start: 20100222, end: 20100315
  3. ZYPREXA [Suspect]
     Route: 048
     Dates: start: 20100216, end: 20100305
  4. VALIUM [Suspect]
     Dosage: 10MG TWICE PER DAY
     Route: 048
     Dates: start: 20100305, end: 20100310
  5. IMOVANE [Suspect]
     Indication: SLEEP DISORDER
     Dosage: 3.75MG PER DAY
     Route: 048
     Dates: start: 20100226, end: 20100316
  6. RIVOTRIL [Concomitant]
     Route: 048
     Dates: start: 20100217, end: 20100316
  7. XANAX [Concomitant]
     Route: 065
     Dates: start: 20100221, end: 20100226
  8. LYSANXIA [Concomitant]
     Dosage: 10MG TWICE PER DAY
     Route: 065
     Dates: start: 20100310

REACTIONS (10)
  - ALANINE AMINOTRANSFERASE INCREASED [None]
  - ALLERGIC BRONCHITIS [None]
  - DERMATITIS EXFOLIATIVE [None]
  - DRUG RASH WITH EOSINOPHILIA AND SYSTEMIC SYMPTOMS [None]
  - EYELID OEDEMA [None]
  - INFLAMMATION [None]
  - LYMPHADENOPATHY [None]
  - ORAL DISORDER [None]
  - RASH MORBILLIFORM [None]
  - SKIN EXFOLIATION [None]
